FAERS Safety Report 6539299-4 (Version None)
Quarter: 2010Q1

REPORT INFORMATION
  Report Type: 
  Country: None (occurrence: None)
  Receive Date: 20100112
  Receipt Date: 20100108
  Transmission Date: 20100710
  Serious: Yes (Death, Hospitalization)
  Sender: FDA-Public Use
  Company Number: 2009SP017555

PATIENT
  Age: 48 Year
  Sex: Male
  Weight: 107.9561 kg

DRUGS (6)
  1. BOCEPREVIR [Suspect]
     Indication: HEPATITIS C
     Dosage: 2400 MG; TID; PO
     Route: 048
     Dates: start: 20090504, end: 20090802
  2. PEGINTERFERON ALFA-2A [Suspect]
     Indication: HEPATITIS C
     Dosage: 180 MCG; QW; SC
     Route: 058
     Dates: start: 20090504, end: 20090727
  3. RIBAVIRIN [Suspect]
     Indication: HEPATITIS C
     Dosage: 1200 MG; BID; PO
     Route: 048
     Dates: start: 20090504, end: 20090802
  4. INSULIN ASPART [Concomitant]
  5. INSULIN GLARGINE [Concomitant]
  6. VITAMIN C [Concomitant]

REACTIONS (8)
  - IMPAIRED HEALING [None]
  - MULTI-ORGAN FAILURE [None]
  - NEUTROPENIA [None]
  - OROPHARYNGEAL PAIN [None]
  - PLATELET COUNT DECREASED [None]
  - PNEUMONIA STAPHYLOCOCCAL [None]
  - SEPSIS [None]
  - SKIN LACERATION [None]
